FAERS Safety Report 5443105-9 (Version None)
Quarter: 2007Q3

REPORT INFORMATION
  Report Type: 
  Country: None (occurrence: None)
  Receive Date: 20070905
  Receipt Date: 20070824
  Transmission Date: 20080115
  Serious: Yes (Hospitalization)
  Sender: FDA-Public Use
  Company Number: JP-NOVOPROD-266864

PATIENT
  Age: 63 Year
  Sex: Female
  Weight: 57 kg

DRUGS (2)
  1. INNOLET R CHU [Suspect]
     Indication: INSULIN-REQUIRING TYPE II DIABETES MELLITUS
     Dosage: 30 IU, QD
     Route: 058
     Dates: start: 20070730
  2. INNOLET N CHU [Suspect]
     Indication: INSULIN-REQUIRING TYPE II DIABETES MELLITUS
     Dosage: 3 IU, QD
     Route: 058
     Dates: start: 20070806, end: 20070806

REACTIONS (1)
  - HEPATIC FUNCTION ABNORMAL [None]
